FAERS Safety Report 12960808 (Version 2)
Quarter: 2020Q4

REPORT INFORMATION
  Report Type: Spontaneous
  Country: US (occurrence: US)
  Receive Date: 20161121
  Receipt Date: 20201110
  Transmission Date: 20210113
  Serious: No
  Sender: FDA-Public Use
  Company Number: US-OTSUKA-2016_019122

PATIENT
  Sex: Male

DRUGS (2)
  1. NUEDEXTA [Suspect]
     Active Substance: DEXTROMETHORPHAN HYDROBROMIDE\QUINIDINE SULFATE
     Indication: AFFECT LABILITY
     Dosage: UNK
     Route: 065
  2. NUEDEXTA [Suspect]
     Active Substance: DEXTROMETHORPHAN HYDROBROMIDE\QUINIDINE SULFATE
     Indication: PROGRESSIVE MULTIPLE SCLEROSIS
     Dosage: UNK, TID
     Route: 065

REACTIONS (4)
  - Therapeutic response unexpected [Unknown]
  - Central nervous system lesion [Unknown]
  - Product use issue [Unknown]
  - Multiple sclerosis relapse [Unknown]
